FAERS Safety Report 9411446 (Version 1)
Quarter: 2013Q3

REPORT INFORMATION
  Report Type: Spontaneous
  Country: US (occurrence: None)
  Receive Date: 20130718
  Receipt Date: 20130718
  Transmission Date: 20140515
  Serious: No
  Sender: FDA-Public Use
  Company Number: None

PATIENT
  Age: 46 Year
  Sex: Female
  Weight: 81.65 kg

DRUGS (1)
  1. PRO-AIR HFA [Suspect]
     Indication: ASTHMA
     Dosage: 1 -2 PUFFS  AS NEEDED
     Dates: start: 20130711, end: 20130711

REACTIONS (1)
  - Device malfunction [None]
